FAERS Safety Report 6840322-8 (Version None)
Quarter: 2010Q2

REPORT INFORMATION
  Report Type: 
  Country: None (occurrence: None)
  Receive Date: 20100629
  Receipt Date: 20100416
  Transmission Date: 20101027
  Serious: Yes (Other)
  Sender: FDA-Public Use
  Company Number: US-WYE-H14644910

PATIENT

DRUGS (3)
  1. PRISTIQ [Suspect]
     Dosage: 50 MG 1X PER 1 DAY
  2. LEXAPRO [Suspect]
     Dosage: UNSPECIFIED DOSE INCREASED
     Dates: start: 20100101, end: 20100101
  3. LEXAPRO [Suspect]
     Dosage: UNSPECIFIED DOSE INCREASED
     Dates: end: 20100101

REACTIONS (2)
  - BLOOD PRESSURE INCREASED [None]
  - SEROTONIN SYNDROME [None]
